FAERS Safety Report 20227738 (Version 2)
Quarter: 2021Q4

REPORT INFORMATION
  Report Type: Report from Study
  Country: MX (occurrence: MX)
  Receive Date: 20211224
  Receipt Date: 20211231
  Transmission Date: 20220303
  Serious: Yes (Life-Threatening)
  Sender: FDA-Public Use
  Company Number: MX-NOVARTISPH-NVSC2021MX295361

PATIENT
  Age: 77 Year
  Sex: Male
  Weight: 64 kg

DRUGS (4)
  1. METFORMIN HYDROCHLORIDE\VILDAGLIPTIN [Suspect]
     Active Substance: METFORMIN HYDROCHLORIDE\VILDAGLIPTIN
     Indication: Diabetes mellitus
     Dosage: 1 DOSAGE FORM, BID
     Route: 048
  2. METFORMIN HYDROCHLORIDE\VILDAGLIPTIN [Suspect]
     Active Substance: METFORMIN HYDROCHLORIDE\VILDAGLIPTIN
     Dosage: 1 DOSAGE FORM, BID
     Route: 065
  3. INSULIN NOS [Concomitant]
     Active Substance: INSULIN NOS
     Indication: Diabetes mellitus
     Dosage: 11 IU, QD
     Route: 058
  4. FABROVEN [Concomitant]
     Active Substance: ASCORBIC ACID\HESPERIDIN METHYLCHALCONE\RUSCUS ACULEATUS ROOT
     Indication: Cardiovascular disorder
     Dosage: 1 DOSAGE FORM, QD (LONG TIME AGO)
     Route: 048

REACTIONS (2)
  - Drug dependence [Not Recovered/Not Resolved]
  - Insomnia [Recovered/Resolved]

NARRATIVE: CASE EVENT DATE: 20211220
